FAERS Safety Report 9602108 (Version 1)
Quarter: 2013Q4

REPORT INFORMATION
  Report Type: Spontaneous
  Country: US (occurrence: US)
  Receive Date: 20131007
  Receipt Date: 20131007
  Transmission Date: 20140711
  Serious: Yes (Hospitalization)
  Sender: FDA-Public Use
  Company Number: US-B.I. PHARMACEUTICALS,INC./RIDGEFIELD-2013-BI-31114BP

PATIENT
  Age: 47 Year
  Sex: Male

DRUGS (1)
  1. PRADAXA [Suspect]
     Indication: EMBOLISM VENOUS
     Dosage: 300 MG
     Route: 048
     Dates: start: 201208

REACTIONS (2)
  - Acute myocardial infarction [Recovered/Resolved]
  - Off label use [Not Recovered/Not Resolved]
